FAERS Safety Report 8796105 (Version 1)
Quarter: 2012Q4

REPORT INFORMATION
  Report Type: 
  Country: US (occurrence: US)
  Receive Date: 20120919
  Receipt Date: 20120919
  Transmission Date: 20130627
  Serious: Yes (Other)
  Sender: FDA-Public Use
  Company Number: CHPA2012US019621

PATIENT
  Age: 73 Year
  Sex: Female

DRUGS (2)
  1. BENEFIBER W/ WHEAT DEXTRIN [Suspect]
     Indication: CONSTIPATION
     Dosage: Daily, amount depends on how bloated she feels
     Route: 048
     Dates: start: 2002
  2. GAS-X [Suspect]
     Indication: ABDOMINAL DISTENSION
     Dosage: UNK, UNK
     Route: 048

REACTIONS (4)
  - Aortic occlusion [Not Recovered/Not Resolved]
  - Abdominal distension [Not Recovered/Not Resolved]
  - Dyspnoea [Not Recovered/Not Resolved]
  - Rectocele [Recovered/Resolved]
